FAERS Safety Report 13302505 (Version 3)
Quarter: 2017Q2

REPORT INFORMATION
  Report Type: Report from Study
  Country: GB (occurrence: GB)
  Receive Date: 20170307
  Receipt Date: 20170410
  Transmission Date: 20170830
  Serious: Yes (Hospitalization, Other)
  Sender: FDA-Public Use
  Company Number: GB-JNJFOC-20170303338

PATIENT
  Age: 71 Year
  Sex: Female
  Weight: 103.8 kg

DRUGS (11)
  1. STELARA [Suspect]
     Active Substance: USTEKINUMAB
     Indication: PSORIASIS
     Route: 058
     Dates: start: 2011
  2. AMITRIPTYLINE [Concomitant]
     Active Substance: AMITRIPTYLINE
     Route: 065
  3. GLYCERYL TRINITRATE [Concomitant]
     Active Substance: NITROGLYCERIN
     Indication: ANGINA PECTORIS
     Route: 065
  4. METFORMIN [Concomitant]
     Active Substance: METFORMIN HYDROCHLORIDE
     Indication: DIABETES MELLITUS
     Route: 065
  5. ZOPICLONE [Concomitant]
     Active Substance: ZOPICLONE
     Route: 065
  6. GLICLAZIDE [Suspect]
     Active Substance: GLICLAZIDE
     Indication: DIABETES MELLITUS
     Route: 065
     Dates: end: 2016
  7. CETOMACROGOL [Concomitant]
     Active Substance: COSMETICS
     Route: 065
  8. STELARA [Suspect]
     Active Substance: USTEKINUMAB
     Indication: PSORIASIS
     Route: 058
  9. PARACETAMOL [Concomitant]
     Active Substance: ACETAMINOPHEN
     Route: 065
  10. PIOGLITAZONE. [Concomitant]
     Active Substance: PIOGLITAZONE
     Indication: DIABETES MELLITUS
     Route: 065
  11. OMEPRAZOLE. [Concomitant]
     Active Substance: OMEPRAZOLE
     Route: 065

REACTIONS (19)
  - Urinary tract infection [Unknown]
  - Systemic lupus erythematosus [Unknown]
  - Therapeutic response decreased [Unknown]
  - Catheterisation cardiac [Unknown]
  - Stress urinary incontinence [Unknown]
  - Genital ulceration [Unknown]
  - Lower respiratory tract infection [Recovered/Resolved]
  - Dehydration [Recovering/Resolving]
  - Psoriasis [Unknown]
  - Blood glucose increased [Unknown]
  - Allergy to metals [Unknown]
  - Hypoglycaemia [Recovered/Resolved]
  - Fall [Unknown]
  - Eating disorder [Unknown]
  - Breast mass [Unknown]
  - Acute kidney injury [Recovered/Resolved]
  - Colitis ulcerative [Unknown]
  - Contusion [Unknown]
  - Musculoskeletal injury [Unknown]

NARRATIVE: CASE EVENT DATE: 20111021
